FAERS Safety Report 4489626-7 (Version None)
Quarter: 2004Q4

REPORT INFORMATION
  Report Type: 
  Country: None (occurrence: None)
  Receive Date: 20041026
  Receipt Date: 20041011
  Transmission Date: 20050328
  Serious: Yes (Hospitalization)
  Sender: FDA-Public Use
  Company Number: 2004-BP-09716AU

PATIENT
  Age: 78 Year
  Sex: Female

DRUGS (7)
  1. MOBIC [Suspect]
     Indication: ARTHRITIS
     Dosage: 7.5 MG (7.5 MG, 1 DAILY) PO
     Route: 048
     Dates: end: 20031125
  2. WARFARIN SODIUM [Suspect]
     Indication: TRANSIENT ISCHAEMIC ATTACK
     Dosage: 2 MG (2 MG, 1 DAILY) PO
     Route: 048
     Dates: end: 20031120
  3. COVERSYL    (TA) [Suspect]
     Indication: ESSENTIAL HYPERTENSION
     Dosage: 4 MG (4 MG, 1 DAILY) PO
     Route: 048
     Dates: end: 20031120
  4. NORVASC [Suspect]
     Indication: ESSENTIAL HYPERTENSION
     Dosage: 5 MG (5 MG, 1 DAILY) PO
     Route: 048
     Dates: end: 20031120
  5. SOMAC   (PANTOPRAZOLE SODIUM) (TA) [Concomitant]
  6. TIMOPTOL        (TIMOLOL MALEATE) (NR) [Concomitant]
  7. XALATAN        (LATANOPROST) (NR) [Concomitant]

REACTIONS (8)
  - ABDOMINAL PAIN UPPER [None]
  - CHILLS [None]
  - CHOLESTASIS [None]
  - HEADACHE [None]
  - LEUKOPENIA [None]
  - MALAISE [None]
  - THROMBOCYTOPENIA [None]
  - TRANSAMINASES INCREASED [None]
